FAERS Safety Report 8792947 (Version 4)
Quarter: 2013Q3

REPORT INFORMATION
  Report Type: Report from Study
  Country: JP (occurrence: JP)
  Receive Date: 20120918
  Receipt Date: 20130801
  Transmission Date: 20140515
  Serious: Yes (Other)
  Sender: FDA-Public Use
  Company Number: JP-ABBOTT-12P-087-0979088-00

PATIENT
  Age: 55 Year
  Sex: Female
  Weight: 50.5 kg

DRUGS (12)
  1. HUMIRA PRE-FILLED SYRINGE [Suspect]
     Indication: RHEUMATOID ARTHRITIS
     Route: 058
     Dates: start: 20120327, end: 20120911
  2. METHOTREXATE [Concomitant]
     Indication: RHEUMATOID ARTHRITIS
     Route: 048
     Dates: end: 20120521
  3. METHOTREXATE [Concomitant]
     Dates: start: 20120522
  4. TACROLIMUS [Concomitant]
     Indication: RHEUMATOID ARTHRITIS
     Route: 048
     Dates: end: 20120410
  5. METHYLPREDNISOLONE [Concomitant]
     Indication: RHEUMATOID ARTHRITIS
     Route: 048
     Dates: start: 20120409, end: 20120409
  6. METHYLPREDNISOLONE [Concomitant]
     Dates: start: 20120410, end: 20120910
  7. METHYLPREDNISOLONE [Concomitant]
     Dates: start: 20120911
  8. ALENDRONATE [Concomitant]
     Indication: PROPHYLAXIS
     Route: 048
  9. ALENDRONATE [Concomitant]
     Indication: ADVERSE REACTION
  10. FOLIC ACID [Concomitant]
     Indication: RHEUMATOID ARTHRITIS
     Route: 048
  11. FOLIC ACID [Concomitant]
     Indication: PROPHYLAXIS
  12. FOLIC ACID [Concomitant]
     Indication: ADVERSE REACTION

REACTIONS (3)
  - Dermatomyositis [Recovered/Resolved]
  - Erythema [Unknown]
  - Blood creatine phosphokinase increased [Unknown]
